FAERS Safety Report 4958906-0 (Version None)
Quarter: 2006Q1

REPORT INFORMATION
  Report Type: 
  Country: None (occurrence: None)
  Receive Date: 20060324
  Receipt Date: 20060320
  Transmission Date: 20060701
  Serious: Yes (Death)
  Sender: FDA-Public Use
  Company Number: NLWYE441001MAR06

PATIENT
  Age: 65 Year
  Sex: Male

DRUGS (4)
  1. RAPAMUNE [Suspect]
     Indication: NEOPLASM PROPHYLAXIS
     Dosage: 1 MG 1X PER 1 DAY ORAL
     Route: 048
     Dates: start: 20040202, end: 20060216
  2. RAPAMUNE [Suspect]
     Indication: PROPHYLAXIS AGAINST TRANSPLANT REJECTION
     Dosage: 1 MG 1X PER 1 DAY ORAL
     Route: 048
     Dates: start: 20040202, end: 20060216
  3. DEPAKENE [Suspect]
     Dosage: 2 X 500 MG
  4. PREDNISONE TAB [Suspect]
     Indication: IMMUNOSUPPRESSION
     Dosage: 2 X 5 MG

REACTIONS (1)
  - COMPLETED SUICIDE [None]
